FAERS Safety Report 23295521 (Version 2)
Quarter: 2024Q4

REPORT INFORMATION
  Report Type: Report from Study
  Country: DE (occurrence: DE)
  Receive Date: 20231214
  Receipt Date: 20241011
  Transmission Date: 20250115
  Serious: Yes (Death, Hospitalization)
  Sender: BOEHRINGER INGELHEIM
  Company Number: DE-BoehringerIngelheim-2023-BI-277205

PATIENT
  Age: 84 Year
  Sex: Male
  Weight: 81.0 kg

DRUGS (5)
  1. NINTEDANIB [Suspect]
     Active Substance: NINTEDANIB
     Indication: Interstitial lung disease
     Route: 048
     Dates: start: 20220430
  2. PANTOZOL [Concomitant]
     Active Substance: PANTOPRAZOLE SODIUM
     Indication: Gastrointestinal disorder prophylaxis
     Route: 048
     Dates: end: 20240526
  3. Atacand, Blopress [Concomitant]
     Indication: Hypertension
     Route: 048
     Dates: end: 20240526
  4. HALOPERIDOL [Concomitant]
     Active Substance: HALOPERIDOL
     Indication: Nausea
     Dosage: 2 MG/ML?30 ML?DROPS
     Dates: start: 20240215, end: 20240526
  5. MORPHINE [Concomitant]
     Active Substance: MORPHINE
     Indication: Dyspnoea
     Dosage: 20?MG/ML?50 ML
     Dates: start: 20240215, end: 20240526

REACTIONS (2)
  - Epistaxis [Fatal]
  - Respiratory failure [Fatal]

NARRATIVE: CASE EVENT DATE: 20230624
